FAERS Safety Report 8435994-0 (Version None)
Quarter: 2012Q2

REPORT INFORMATION
  Report Type: 
  Country: None (occurrence: None)
  Receive Date: 20120614
  Receipt Date: 20120605
  Transmission Date: 20120825
  Serious: Yes (Hospitalization, Other)
  Sender: FDA-Public Use
  Company Number: FR-ROCHE-1061930

PATIENT
  Sex: Male
  Weight: 75 kg

DRUGS (2)
  1. MABTHERA [Suspect]
     Indication: RHEUMATOID ARTHRITIS
     Route: 042
     Dates: start: 20100901
  2. ENBREL [Suspect]
     Indication: RHEUMATOID ARTHRITIS
     Route: 058
     Dates: start: 20050101, end: 20100801

REACTIONS (4)
  - BONE LESION [None]
  - METASTASIS [None]
  - LUNG ADENOCARCINOMA STAGE IV [None]
  - HEPATIC LESION [None]
